FAERS Safety Report 4282823-5 (Version None)
Quarter: 2004Q1

REPORT INFORMATION
  Report Type: 
  Country: None (occurrence: None)
  Receive Date: 20040130
  Receipt Date: 20030429
  Transmission Date: 20041129
  Serious: No
  Sender: FDA-Public Use
  Company Number: US-BRISTOL-MYERS SQUIBB COMPANY-12257929

PATIENT
  Age: 60 Year
  Sex: Male
  Weight: 73 kg

DRUGS (5)
  1. SERZONE [Suspect]
     Indication: DEPRESSION
     Route: 048
  2. GEODON [Concomitant]
  3. ADVAIR DISKUS 100/50 [Concomitant]
  4. NEURONTIN [Concomitant]
  5. AMITRIPTYLINE [Concomitant]

REACTIONS (3)
  - CONTUSION [None]
  - HAEMORRHOIDAL HAEMORRHAGE [None]
  - PETECHIAE [None]
